FAERS Safety Report 10464979 (Version 1)
Quarter: 2014Q3

REPORT INFORMATION
  Report Type: Report from Study
  Country: US (occurrence: US)
  Receive Date: 20140919
  Receipt Date: 20140919
  Transmission Date: 20150326
  Serious: Yes (Hospitalization)
  Sender: FDA-Public Use
  Company Number: US-GLAXOSMITHKLINE-A1089711A

PATIENT
  Age: 64 Year
  Sex: Female
  Weight: 59.4 kg

DRUGS (2)
  1. GSK2141795 [Suspect]
     Active Substance: UPROSERTIB
     Indication: INTRAOCULAR MELANOMA
     Dosage: 50MG PER DAY
     Route: 048
     Dates: start: 20140522
  2. TRAMETINIB [Suspect]
     Active Substance: TRAMETINIB
     Indication: INTRAOCULAR MELANOMA
     Dosage: 1.5MG PER DAY
     Route: 048
     Dates: start: 20140522

REACTIONS (2)
  - Cerebrovascular accident [Recovered/Resolved]
  - Atrial fibrillation [Recovered/Resolved]

NARRATIVE: CASE EVENT DATE: 20140620
